FAERS Safety Report 14241226 (Version 3)
Quarter: 2018Q2

REPORT INFORMATION
  Report Type: Report from Study
  Country: US (occurrence: US)
  Receive Date: 20171130
  Receipt Date: 20180524
  Transmission Date: 20180711
  Serious: Yes (Hospitalization)
  Sender: FDA-Public Use
  Company Number: US-BRISTOL-MYERS SQUIBB COMPANY-BMS-2017-105850

PATIENT
  Age: 70 Year
  Sex: Female

DRUGS (2)
  1. IPILIMUMAB [Suspect]
     Active Substance: IPILIMUMAB
     Indication: NON-SMALL CELL LUNG CANCER
     Dosage: 1 MG/KG, INTERRUPTED:11OCT17
     Route: 042
     Dates: start: 20171011
  2. NIVOLUMAB [Suspect]
     Active Substance: NIVOLUMAB
     Indication: NON-SMALL CELL LUNG CANCER
     Dosage: 240 MG, INTERRUPTED:8NOV17
     Route: 042
     Dates: start: 20171011

REACTIONS (1)
  - Hypoparathyroidism [Recovered/Resolved with Sequelae]

NARRATIVE: CASE EVENT DATE: 20171117
